FAERS Safety Report 24013580 (Version 1)
Quarter: 2024Q2

REPORT INFORMATION
  Report Type: Report from Study
  Country: JP (occurrence: JP)
  Receive Date: 20240626
  Receipt Date: 20240626
  Transmission Date: 20240716
  Serious: Yes (Life-Threatening, Hospitalization, Other)
  Sender: FDA-Public Use
  Company Number: JP-ABBVIE-5814602

PATIENT
  Age: 80 Year
  Sex: Female
  Weight: 48 kg

DRUGS (1)
  1. RINVOQ [Suspect]
     Active Substance: UPADACITINIB
     Indication: Rheumatoid arthritis
     Route: 048
     Dates: start: 20210326, end: 20230619

REACTIONS (1)
  - Aortic dissection [Recovered/Resolved]

NARRATIVE: CASE EVENT DATE: 20230619
